FAERS Safety Report 6436797-9 (Version None)
Quarter: 2009Q4

REPORT INFORMATION
  Report Type: 
  Country: None (occurrence: None)
  Receive Date: 20091109
  Receipt Date: 20091027
  Transmission Date: 20100525
  Serious: Yes (Death)
  Sender: FDA-Public Use
  Company Number: 2009AL006878

PATIENT
  Age: 53 Year
  Sex: Male

DRUGS (6)
  1. CHLORPROMAZINE HYDROCHLORIDE CONCENTRATE [Suspect]
  2. TRAMADOL HCL [Suspect]
  3. OLANZAPINE [Concomitant]
  4. AMITRIPTYLINE HCL [Concomitant]
  5. HYDROCODONE [Concomitant]
  6. ZOLPIDEM [Concomitant]

REACTIONS (7)
  - DILATATION VENTRICULAR [None]
  - DRUG TOXICITY [None]
  - EMPHYSEMA [None]
  - HEPATIC STEATOSIS [None]
  - HYPERTENSIVE HEART DISEASE [None]
  - NEPHROSCLEROSIS [None]
  - PLEURAL ADHESION [None]
